FAERS Safety Report 26042683 (Version 3)
Quarter: 2025Q4

REPORT INFORMATION
  Report Type: Spontaneous
  Country: CA (occurrence: CA)
  Receive Date: 20251113
  Receipt Date: 20251205
  Transmission Date: 20260118
  Serious: Yes (Other)
  Sender: PFIZER
  Company Number: CA-PFIZER INC-202500169790

PATIENT
  Age: 63 Year
  Sex: Male
  Weight: 60 kg

DRUGS (3)
  1. IXIFI [Suspect]
     Active Substance: INFLIXIMAB-QBTX
     Indication: Crohn^s disease
     Dosage: 5 MG/KG, EVERY 8 WEEKS
     Route: 042
     Dates: start: 20250821
  2. IXIFI [Suspect]
     Active Substance: INFLIXIMAB-QBTX
     Dosage: 300 MG, 8 WEEKS
     Route: 042
     Dates: start: 20251016
  3. PREDNISONE [Concomitant]
     Active Substance: PREDNISONE
     Dosage: 1 DF (DECREASING DOSE)
     Dates: start: 202502

REACTIONS (13)
  - Anaemia [Not Recovered/Not Resolved]
  - Depressed level of consciousness [Unknown]
  - Aspiration [Unknown]
  - Blood albumin decreased [Unknown]
  - Malnutrition [Not Recovered/Not Resolved]
  - Generalised oedema [Unknown]
  - Dysphagia [Unknown]
  - Gastrointestinal stenosis [Unknown]
  - Treatment failure [Unknown]
  - Drug level below therapeutic [Not Recovered/Not Resolved]
  - Fall [Unknown]
  - Nasopharyngitis [Not Recovered/Not Resolved]
  - Off label use [Unknown]

NARRATIVE: CASE EVENT DATE: 20250101
